FAERS Safety Report 9258508 (Version 1)
Quarter: 2013Q2

REPORT INFORMATION
  Report Type: Spontaneous
  Country: US (occurrence: US)
  Receive Date: 20130426
  Receipt Date: 20130426
  Transmission Date: 20140414
  Serious: No
  Sender: FDA-Public Use
  Company Number: US-JNJFOC-20130317989

PATIENT
  Sex: Male
  Weight: 75.3 kg

DRUGS (3)
  1. INVEGA SUSTENNA [Suspect]
     Indication: SCHIZOPHRENIA
     Dosage: PALIPERIDONE PALMITATE UNSPECIFIED/SOLUTION EVERY 4 WEEKS INTRAMUSCULAR.
     Route: 030
  2. METHYLPHENIDATE HCL [Concomitant]
     Route: 048
     Dates: start: 201302
  3. XANAX [Concomitant]
     Route: 048

REACTIONS (3)
  - Tremor [Not Recovered/Not Resolved]
  - Muscular weakness [Not Recovered/Not Resolved]
  - Tremor [Not Recovered/Not Resolved]
